FAERS Safety Report 8904681 (Version 1)
Quarter: 2012Q4

REPORT INFORMATION
  Report Type: Report from Study
  Country: DE (occurrence: CH)
  Receive Date: 20121113
  Receipt Date: 20121113
  Transmission Date: 20130627
  Serious: Yes (Death, Life-Threatening, Hospitalization, Other)
  Sender: FDA-Public Use
  Company Number: PHHO2012CH016169

PATIENT
  Sex: Male
  Weight: 82 kg

DRUGS (9)
  1. FTY 720 [Suspect]
     Indication: MULTIPLE SCLEROSIS
     Dosage: 1.25 mg, UNK
     Route: 048
     Dates: start: 20100614, end: 20120612
  2. NORVASC [Concomitant]
     Indication: HYPERTENSION
     Dosage: 5 mg, QD
     Route: 048
     Dates: start: 20110302
  3. ASPIRIN [Concomitant]
     Dosage: UNK
     Dates: start: 20000225, end: 20120612
  4. TRANSIPEG [Concomitant]
  5. NOVALGIN [Concomitant]
     Indication: HEADACHE
     Dosage: 1 g, QID
     Route: 048
     Dates: start: 20120601
  6. DAFALGAN [Concomitant]
     Indication: HEADACHE
     Dosage: 1 g, QID
     Route: 048
     Dates: start: 20120601
  7. CALCIMAGON [Concomitant]
     Dosage: 1 g, QID
     Route: 048
     Dates: start: 20070701
  8. ACIDUM FOLICUM [Concomitant]
     Dosage: 1 mg, QD
     Route: 048
     Dates: start: 20100701
  9. SPASMO-URGENIN [Concomitant]
     Dosage: 1 mg, QD
     Dates: start: 20100325

REACTIONS (8)
  - Squamous cell carcinoma of lung [Fatal]
  - Metastases to liver [Fatal]
  - Metastases to kidney [Fatal]
  - Metastases to central nervous system [Fatal]
  - Metastases to bone [Fatal]
  - Basal cell carcinoma [Not Recovered/Not Resolved]
  - Skin cancer [Unknown]
  - Actinic keratosis [Not Recovered/Not Resolved]
